FAERS Safety Report 6294188-8 (Version None)
Quarter: 2009Q3

REPORT INFORMATION
  Report Type: 
  Country: None (occurrence: None)
  Receive Date: 20090803
  Receipt Date: 20090211
  Transmission Date: 20100115
  Serious: No
  Sender: FDA-Public Use
  Company Number: A0768143A

PATIENT
  Age: 64 Year
  Sex: Female

DRUGS (3)
  1. NICORETTE [Suspect]
     Dates: start: 20090204, end: 20090209
  2. NICODERM CQ [Suspect]
     Dates: start: 20090102, end: 20090112
  3. STEROID CREAM [Concomitant]

REACTIONS (10)
  - ANXIETY [None]
  - APPLICATION SITE PRURITUS [None]
  - APPLICATION SITE RASH [None]
  - APPLICATION SITE SWELLING [None]
  - DRUG INEFFECTIVE [None]
  - GINGIVAL ERYTHEMA [None]
  - HICCUPS [None]
  - HYPERSENSITIVITY [None]
  - ORAL PAIN [None]
  - STOMATITIS [None]
